FAERS Safety Report 9614300 (Version 1)
Quarter: 2013Q4

REPORT INFORMATION
  Report Type: Spontaneous
  Country: ID (occurrence: ID)
  Receive Date: 20131011
  Receipt Date: 20131011
  Transmission Date: 20140711
  Serious: Yes (Other)
  Sender: FDA-Public Use
  Company Number: ID-ROCHE-1287456

PATIENT
  Sex: 0

DRUGS (2)
  1. MIRCERA [Suspect]
     Indication: PRODUCT USED FOR UNKNOWN INDICATION
     Dosage: FOR INDUCTION
     Route: 065
  2. MIRCERA [Suspect]
     Dosage: FOR MIANTENANCE
     Route: 065

REACTIONS (1)
  - Respiratory disorder [Unknown]
